FAERS Safety Report 22603830 (Version 3)
Quarter: 2023Q4

REPORT INFORMATION
  Report Type: Report from Study
  Country: CA (occurrence: CA)
  Receive Date: 20230615
  Receipt Date: 20231213
  Transmission Date: 20240109
  Serious: Yes (Other)
  Sender: FDA-Public Use
  Company Number: CA-JNJFOC-20230414915

PATIENT
  Age: 26 Year
  Sex: Female
  Weight: 109 kg

DRUGS (2)
  1. STELARA [Suspect]
     Active Substance: USTEKINUMAB
     Indication: Crohn^s disease
     Dosage: LAST INJECTION ON 10-FEB-2023
     Route: 058
     Dates: start: 20221215
  2. STELARA [Suspect]
     Active Substance: USTEKINUMAB
     Route: 058

REACTIONS (6)
  - Infected fistula [Unknown]
  - Fistula [Unknown]
  - Crohn^s disease [Not Recovered/Not Resolved]
  - Decreased appetite [Unknown]
  - Road traffic accident [Unknown]
  - Product dose omission issue [Unknown]

NARRATIVE: CASE EVENT DATE: 20230301
